FAERS Safety Report 9136162 (Version 2)
Quarter: 2013Q1

REPORT INFORMATION
  Report Type: Spontaneous
  Country: BR (occurrence: BR)
  Receive Date: 20130304
  Receipt Date: 20130307
  Transmission Date: 20140127
  Serious: Yes (Death, Congenital Anomaly)
  Sender: FDA-Public Use
  Company Number: BR-GLAXOSMITHKLINE-A1001221B

PATIENT
  Sex: Male

DRUGS (8)
  1. NARAMIG [Suspect]
     Indication: MIGRAINE
     Dosage: 5MG SEE DOSAGE TEXT
     Route: 064
     Dates: start: 2002
  2. CHLORPROMAZINE HYDROCHLORIDE [Suspect]
     Indication: MIGRAINE
     Dosage: 20DROP PER DAY
     Route: 064
     Dates: start: 2002
  3. DIPYRONE [Suspect]
     Indication: DRUG INEFFECTIVE
     Route: 064
     Dates: start: 2002
  4. LAMICTAL [Suspect]
     Indication: BIPOLAR DISORDER
     Dosage: 50MG AT NIGHT
     Route: 064
     Dates: start: 2002
  5. RIVOTRIL [Suspect]
     Indication: PRODUCT USED FOR UNKNOWN INDICATION
     Dosage: 1MG SEE DOSAGE TEXT
     Route: 064
     Dates: start: 2002
  6. TOPIRAMATE [Suspect]
     Indication: PRODUCT USED FOR UNKNOWN INDICATION
     Dosage: 50MG PER DAY
     Route: 064
  7. MAXALT [Suspect]
     Indication: MIGRAINE
     Dosage: 1TAB SEE DOSAGE TEXT
     Route: 064
     Dates: start: 2002
  8. PROGESTERONE [Suspect]
     Indication: PRODUCT USED FOR UNKNOWN INDICATION
     Dosage: 1CAP AT NIGHT
     Route: 064

REACTIONS (7)
  - Foetal death [Fatal]
  - Exomphalos [Unknown]
  - Umbilical cord vascular disorder [Unknown]
  - Talipes [Unknown]
  - Lordosis [Unknown]
  - Cerebral ventricle dilatation [Unknown]
  - Foetal exposure during pregnancy [Unknown]
